FAERS Safety Report 8392321-5 (Version None)
Quarter: 2012Q2

REPORT INFORMATION
  Report Type: 
  Country: None (occurrence: None)
  Receive Date: 20120529
  Receipt Date: 20120518
  Transmission Date: 20120825
  Serious: Yes (Other)
  Sender: FDA-Public Use
  Company Number: US-ELI_LILLY_AND_COMPANY-US201203002347

PATIENT
  Sex: Male

DRUGS (5)
  1. ASPIRIN [Concomitant]
  2. SODIUM NITRITE [Concomitant]
  3. PLAVIX [Concomitant]
  4. EFFIENT [Suspect]
  5. HEPARIN [Concomitant]

REACTIONS (2)
  - THROMBOSIS IN DEVICE [None]
  - DRUG DOSE OMISSION [None]
